FAERS Safety Report 18587153 (Version 2)
Quarter: 2021Q1

REPORT INFORMATION
  Report Type: Report from Study
  Country: US (occurrence: US)
  Receive Date: 20201207
  Receipt Date: 20210208
  Transmission Date: 20210419
  Serious: Yes (Other)
  Sender: FDA-Public Use
  Company Number: NVSC2020US321534

PATIENT
  Sex: Male

DRUGS (1)
  1. ENTRESTO [Suspect]
     Active Substance: SACUBITRIL\VALSARTAN
     Indication: PRODUCT USED FOR UNKNOWN INDICATION
     Dosage: 50 MG (24/26 MG), BID
     Route: 048

REACTIONS (6)
  - Blood sodium decreased [Unknown]
  - Cough [Unknown]
  - Cardiogenic shock [Unknown]
  - Low density lipoprotein abnormal [Unknown]
  - Throat clearing [Unknown]
  - High density lipoprotein abnormal [Unknown]
